FAERS Safety Report 9794614 (Version 2)
Quarter: 2014Q2

REPORT INFORMATION
  Report Type: Spontaneous
  Country: US (occurrence: US)
  Receive Date: 20140102
  Receipt Date: 20140415
  Transmission Date: 20141212
  Serious: Yes (Other)
  Sender: FDA-Public Use
  Company Number: US-UCBSA-107322

PATIENT
  Sex: Female
  Weight: 99.79 kg

DRUGS (2)
  1. KEPPRA [Suspect]
     Indication: CONVULSION
     Dosage: STRENGTH: 750MG 4/DAILY (2 IN MORNING AND 2 IN NIGHT)
  2. TEGRETOL [Concomitant]
     Indication: EPILEPSY
     Dosage: 200MG DOSE (2 IN MORNING, 3 IN AFTERNOON AND 3 IN NIGHT)

REACTIONS (1)
  - Radius fracture [Not Recovered/Not Resolved]
